FAERS Safety Report 15010913 (Version 4)
Quarter: 2022Q4

REPORT INFORMATION
  Report Type: Spontaneous
  Country: ES (occurrence: ES)
  Receive Date: 20180614
  Receipt Date: 20221016
  Transmission Date: 20230113
  Serious: Yes (Death, Life-Threatening, Hospitalization, Other)
  Sender: FDA-Public Use
  Company Number: ES-009507513-1804ESP011263

PATIENT
  Age: 71 Year
  Sex: Male
  Weight: 87 kg

DRUGS (7)
  1. KEYTRUDA [Suspect]
     Active Substance: PEMBROLIZUMAB
     Indication: Non-small cell lung cancer
     Dosage: 200 MG, EVERY 21 DAYS
     Route: 042
     Dates: start: 20180305, end: 20180328
  2. KEYTRUDA [Suspect]
     Active Substance: PEMBROLIZUMAB
     Indication: Lung adenocarcinoma
  3. PYRIDOSTIGMINE BROMIDE [Suspect]
     Active Substance: PYRIDOSTIGMINE BROMIDE
     Dosage: UNK
  4. BUPRENORPHINE [Concomitant]
     Active Substance: BUPRENORPHINE
     Dosage: UNK
  5. ENALAPRIL [Concomitant]
     Active Substance: ENALAPRIL
     Dosage: UNK
  6. OMEPRAZOLE [Concomitant]
     Active Substance: OMEPRAZOLE
     Dosage: UNK
  7. METAMIZOLE MAGNESIUM [Concomitant]
     Active Substance: METAMIZOLE MAGNESIUM

REACTIONS (29)
  - Myasthenic syndrome [Fatal]
  - Multiple organ dysfunction syndrome [Fatal]
  - Malignant neoplasm progression [Fatal]
  - Lung adenocarcinoma recurrent [Fatal]
  - Acute respiratory failure [Fatal]
  - Myocardial injury [Fatal]
  - Polymyositis [Fatal]
  - Diplopia [Unknown]
  - Pulmonary congestion [Unknown]
  - Brain oedema [Unknown]
  - Pericardial effusion [Unknown]
  - Bradycardia [Unknown]
  - Hemianopia [Unknown]
  - Ophthalmoplegia [Unknown]
  - Pneumonia [Unknown]
  - Asthenia [Unknown]
  - Pleural effusion [Unknown]
  - Tachycardia [Unknown]
  - Urinary incontinence [Unknown]
  - Eyelid ptosis [Unknown]
  - Extensor plantar response [Unknown]
  - Toxicity to various agents [Unknown]
  - Hypercapnia [Unknown]
  - Visual acuity reduced [Unknown]
  - Atelectasis [Unknown]
  - Hyperhidrosis [Unknown]
  - Hypertension [Unknown]
  - Eczema [Unknown]
  - Dyspnoea [Unknown]

NARRATIVE: CASE EVENT DATE: 20180101
